FAERS Safety Report 19150898 (Version 1)
Quarter: 2021Q2

REPORT INFORMATION
  Report Type: Spontaneous
  Country: UA (occurrence: UA)
  Receive Date: 20210419
  Receipt Date: 20210419
  Transmission Date: 20210717
  Serious: Yes (Other)
  Sender: FDA-Public Use
  Company Number: UA-LUPIN PHARMACEUTICALS INC.-2021-04684

PATIENT
  Age: 22 Year
  Sex: Female

DRUGS (2)
  1. BETAMETHASONE. [Suspect]
     Active Substance: BETAMETHASONE
     Indication: MATERNAL THERAPY TO ENHANCE FOETAL LUNG MATURITY
     Dosage: 24 MILLIGRAM
     Route: 065
  2. TERBUTALINE [Suspect]
     Active Substance: TERBUTALINE
     Indication: TOCOLYSIS
     Dosage: UNK
     Route: 042

REACTIONS (2)
  - Exposure during pregnancy [Unknown]
  - Premature delivery [Unknown]
